FAERS Safety Report 25085967 (Version 1)
Quarter: 2025Q1

REPORT INFORMATION
  Report Type: Spontaneous
  Country: US (occurrence: US)
  Receive Date: 20250317
  Receipt Date: 20250317
  Transmission Date: 20250409
  Serious: Yes (Other)
  Sender: UCB
  Company Number: US-UCBSA-2025014090

PATIENT

DRUGS (3)
  1. BRIVIACT [Suspect]
     Active Substance: BRIVARACETAM
     Indication: Seizure
     Dosage: 100 MILLIGRAM, 2X/DAY (BID)
     Dates: start: 2015
  2. BRIVIACT [Suspect]
     Active Substance: BRIVARACETAM
     Dosage: 150 MILLIGRAM, 2X/DAY (BID)
     Route: 065
  3. BRIVIACT [Suspect]
     Active Substance: BRIVARACETAM
     Dosage: 75 MILLIGRAM, 2X/DAY (BID)
     Route: 065

REACTIONS (2)
  - Seizure [Recovering/Resolving]
  - Overdose [Unknown]
